FAERS Safety Report 5572160-0 (Version None)
Quarter: 2007Q4

REPORT INFORMATION
  Report Type: 
  Country: None (occurrence: None)
  Receive Date: 20071221
  Receipt Date: 20071211
  Transmission Date: 20080405
  Serious: Yes (Other)
  Sender: FDA-Public Use
  Company Number: PT-PFIZER INC-2007102492

PATIENT
  Age: 46 Year
  Sex: Female

DRUGS (5)
  1. CHANTIX [Suspect]
     Indication: SMOKING CESSATION THERAPY
     Route: 048
  2. CHANTIX [Suspect]
     Dosage: TEXT:0,5MG BID  TDD:1MG
     Route: 048
     Dates: start: 20071104, end: 20071107
  3. CHANTIX [Suspect]
     Dosage: TEXT:1MG BID  TDD:2MG
     Route: 048
  4. PROPYCIL [Concomitant]
     Route: 048
  5. INDERAL [Concomitant]
     Route: 048

REACTIONS (11)
  - ABNORMAL DREAMS [None]
  - BONE PAIN [None]
  - DYSPNOEA [None]
  - EYE DISORDER [None]
  - EYELID OEDEMA [None]
  - FATIGUE [None]
  - FLATULENCE [None]
  - FLUID RETENTION [None]
  - NAUSEA [None]
  - SINUSITIS [None]
  - URINE OUTPUT DECREASED [None]
